FAERS Safety Report 18849817 (Version 2)
Quarter: 2021Q1

REPORT INFORMATION
  Report Type: Spontaneous
  Country: DE (occurrence: DE)
  Receive Date: 20210204
  Receipt Date: 20210212
  Transmission Date: 20210420
  Serious: Yes (Hospitalization)
  Sender: FDA-Public Use
  Company Number: DE-TEVA-2021-DE-1874835

PATIENT
  Age: 14 Month
  Sex: Female
  Weight: 13 kg

DRUGS (1)
  1. HYDROMORPHONE [Suspect]
     Active Substance: HYDROMORPHONE
     Indication: PRODUCT USED FOR UNKNOWN INDICATION
     Dosage: THE GIRL ACCIDENTALLY INGESTED HYDROMORPHONE
     Route: 048

REACTIONS (10)
  - Cyanosis [Recovering/Resolving]
  - Accidental overdose [Recovering/Resolving]
  - Tachycardia [Recovering/Resolving]
  - Accidental exposure to product by child [Recovering/Resolving]
  - Acute respiratory failure [Recovering/Resolving]
  - Respiratory acidosis [Recovering/Resolving]
  - Hypotension [Recovering/Resolving]
  - Miosis [Recovering/Resolving]
  - Loss of consciousness [Recovering/Resolving]
  - Toxicity to various agents [Recovering/Resolving]
